FAERS Safety Report 21818817 (Version 1)
Quarter: 2023Q1

REPORT INFORMATION
  Report Type: Spontaneous
  Country: IN (occurrence: IN)
  Receive Date: 20230104
  Receipt Date: 20230104
  Transmission Date: 20230418
  Serious: Yes (Other)
  Sender: FDA-Public Use
  Company Number: IN-MYLANLABS-2022M1140951

PATIENT
  Age: 52 Year
  Sex: Male

DRUGS (10)
  1. AMPHOTERICIN B [Suspect]
     Active Substance: AMPHOTERICIN B
     Indication: Device related infection
     Dosage: UNK
     Route: 065
  2. AMPHOTERICIN B [Suspect]
     Active Substance: AMPHOTERICIN B
     Indication: Candida infection
  3. FLUCONAZOLE [Suspect]
     Active Substance: FLUCONAZOLE
     Indication: Device related infection
     Dosage: UNK
     Route: 065
  4. FLUCONAZOLE [Suspect]
     Active Substance: FLUCONAZOLE
     Indication: Candida infection
  5. ACETYLCYSTEINE [Suspect]
     Active Substance: ACETYLCYSTEINE
     Indication: Device related infection
     Dosage: UNK
     Route: 065
  6. ACETYLCYSTEINE [Suspect]
     Active Substance: ACETYLCYSTEINE
     Indication: Candida infection
  7. HEPARIN [Suspect]
     Active Substance: HEPARIN SODIUM
     Indication: Device related infection
     Dosage: UNK
     Route: 065
  8. HEPARIN [Suspect]
     Active Substance: HEPARIN SODIUM
     Indication: Candida infection
  9. SALINE [Suspect]
     Active Substance: SODIUM CHLORIDE
     Indication: Device related infection
     Dosage: UNK
     Route: 065
  10. SALINE [Suspect]
     Active Substance: SODIUM CHLORIDE
     Indication: Candida infection

REACTIONS (1)
  - Treatment failure [Unknown]
